FAERS Safety Report 5376146-0 (Version None)
Quarter: 2007Q3

REPORT INFORMATION
  Report Type: 
  Country: None (occurrence: None)
  Receive Date: 20070702
  Receipt Date: 20070627
  Transmission Date: 20080115
  Serious: Yes (Death, Hospitalization)
  Sender: FDA-Public Use
  Company Number: NZ-SANOFI-SYNTHELABO-F01200700752

PATIENT
  Sex: Male

DRUGS (9)
  1. DIFFLAM [Concomitant]
     Dates: start: 20070503
  2. NYSTATIN [Concomitant]
     Dates: start: 20070503
  3. CHINAPRYL [Concomitant]
     Dates: start: 20060418, end: 20070503
  4. ASPIRIN [Concomitant]
     Dates: start: 20011124
  5. AQUEOUS CREAM (EMULSION OINTMENT BASE/ WAX, EMULSIFYING) [Concomitant]
     Dates: start: 20070505
  6. BEVACIZUMAB [Suspect]
     Route: 042
  7. CAPECITABINE [Suspect]
     Dosage: DAYS 1-7, TWICE A DAY
     Route: 048
     Dates: start: 20070403
  8. CAPECITABINE [Suspect]
     Dosage: DAYS 1-7, TWICE A DAY
     Route: 048
  9. OXALIPLATIN [Suspect]
     Indication: COLORECTAL CANCER
     Route: 042

REACTIONS (5)
  - GASTROINTESTINAL PAIN [None]
  - LARGE INTESTINE PERFORATION [None]
  - SEPSIS [None]
  - SMALL INTESTINAL OBSTRUCTION [None]
  - VOMITING [None]
